FAERS Safety Report 7644070-6 (Version None)
Quarter: 2011Q3

REPORT INFORMATION
  Report Type: 
  Country: None (occurrence: None)
  Receive Date: 20110729
  Receipt Date: 20110719
  Transmission Date: 20111222
  Serious: Yes (Other)
  Sender: FDA-Public Use
  Company Number: CA-JNJFOC-20110709319

PATIENT
  Sex: Female
  Weight: 75 kg

DRUGS (3)
  1. REMICADE [Suspect]
     Indication: CROHN'S DISEASE
     Route: 042
     Dates: start: 20090508, end: 20110614
  2. SINGULAIR [Concomitant]
     Indication: ASTHMA
     Dosage: AS NEEDED
     Route: 065
  3. METHOTREXATE [Concomitant]
     Route: 048

REACTIONS (1)
  - BASAL CELL CARCINOMA [None]
